FAERS Safety Report 22789989 (Version 5)
Quarter: 2023Q4

REPORT INFORMATION
  Report Type: Spontaneous
  Country: US (occurrence: US)
  Receive Date: 20230804
  Receipt Date: 20231016
  Transmission Date: 20240109
  Serious: Yes (Other)
  Sender: FDA-Public Use
  Company Number: US-PFIZER INC-PV202300133456

PATIENT
  Age: 88 Year
  Sex: Female

DRUGS (2)
  1. PREMARIN [Suspect]
     Active Substance: ESTROGENS, CONJUGATED
     Indication: Hot flush
     Dosage: UNK, THREE TIMES A WEEK (MON- WED- FRI)
  2. PREMARIN [Suspect]
     Active Substance: ESTROGENS, CONJUGATED
     Indication: Hot flush
     Dosage: UNK, THREE TIMES A WEEK (MON- WED- FRI)

REACTIONS (4)
  - Thyroid disorder [Not Recovered/Not Resolved]
  - Back disorder [Unknown]
  - Joint injury [Unknown]
  - Off label use [Unknown]
